FAERS Safety Report 23439356 (Version 2)
Quarter: 2025Q4

REPORT INFORMATION
  Report Type: Spontaneous
  Country: CA (occurrence: CA)
  Receive Date: 20240124
  Receipt Date: 20251114
  Transmission Date: 20260118
  Serious: Yes (Other)
  Sender: MERCK SHARP & DOHME LLC
  Company Number: None

PATIENT

DRUGS (1)
  1. TEMODAL [Suspect]
     Active Substance: TEMOZOLOMIDE
     Indication: Nervous system disorder
     Dosage: DOSE DESCRIPTION : DOSAGE FORM: NOT SPECIFIED
     Route: 065

REACTIONS (1)
  - Product ineffective [Unknown]
